FAERS Safety Report 6571749-X (Version None)
Quarter: 2010Q1

REPORT INFORMATION
  Report Type: 
  Country: None (occurrence: None)
  Receive Date: 20100205
  Receipt Date: 20100201
  Transmission Date: 20100710
  Serious: Yes (Life-Threatening)
  Sender: FDA-Public Use
  Company Number: NZ-ASTRAZENECA-2010SE04513

PATIENT
  Age: 84 Year
  Sex: Female

DRUGS (5)
  1. OMEPRAZOLE [Suspect]
     Indication: DYSPEPSIA
     Route: 048
     Dates: start: 20050601, end: 20051125
  2. FRUSEMIDE [Concomitant]
     Indication: OEDEMA
     Route: 048
     Dates: start: 20050801, end: 20051126
  3. FELODIPINE [Concomitant]
     Indication: ESSENTIAL HYPERTENSION
     Route: 048
     Dates: end: 20051126
  4. METAMUCIL [Concomitant]
     Route: 048
  5. DIFLUCORTOLONE [Concomitant]
     Route: 062

REACTIONS (2)
  - RENAL FAILURE ACUTE [None]
  - TUBULOINTERSTITIAL NEPHRITIS [None]
